FAERS Safety Report 5709059-2 (Version None)
Quarter: 2008Q2

REPORT INFORMATION
  Report Type: 
  Country: None (occurrence: None)
  Receive Date: 20080418
  Receipt Date: 20080418
  Transmission Date: 20081010
  Serious: Yes (Life-Threatening, Other)
  Sender: FDA-Public Use
  Company Number: None

PATIENT
  Age: 47 Year
  Sex: Female
  Weight: 77.1115 kg

DRUGS (1)
  1. HEPARIN [Suspect]
     Indication: CYSTITIS
     Dosage: 2 ML DOSAGE AS NEEDED INTRA-UTERINE
     Route: 015
     Dates: start: 20080101, end: 20080101

REACTIONS (7)
  - ABASIA [None]
  - DRUG INEFFECTIVE [None]
  - DYSSTASIA [None]
  - HAEMORRHAGE [None]
  - NO THERAPEUTIC RESPONSE [None]
  - PAIN [None]
  - PHARMACEUTICAL PRODUCT COMPLAINT [None]
